FAERS Safety Report 13537712 (Version 1)
Quarter: 2017Q2

REPORT INFORMATION
  Report Type: Spontaneous
  Country: NL (occurrence: NL)
  Receive Date: 20170511
  Receipt Date: 20170511
  Transmission Date: 20170830
  Serious: Yes (Life-Threatening, Other)
  Sender: FDA-Public Use
  Company Number: NL-BAUSCH-BL-2017-014148

PATIENT
  Age: 57 Year
  Sex: Male

DRUGS (2)
  1. CLINDAMYCIN. [Suspect]
     Active Substance: CLINDAMYCIN
     Indication: STREPTOCOCCAL INFECTION
     Route: 065
  2. BENZYLPENICILLIN [Suspect]
     Active Substance: PENICILLIN G
     Indication: STREPTOCOCCAL INFECTION
     Route: 065

REACTIONS (1)
  - Drug ineffective [Not Recovered/Not Resolved]
